FAERS Safety Report 10226651 (Version 1)
Quarter: 2014Q2

REPORT INFORMATION
  Report Type: Report from Study
  Country: US (occurrence: US)
  Receive Date: 20140609
  Receipt Date: 20140609
  Transmission Date: 20141212
  Serious: No
  Sender: FDA-Public Use
  Company Number: PHEH2014US011554

PATIENT
  Sex: Male
  Weight: 87.1 kg

DRUGS (14)
  1. TASIGNA [Suspect]
     Indication: CHRONIC MYELOID LEUKAEMIA
     Dosage: 200 MG, BID
     Route: 048
     Dates: start: 20140224
  2. TASIGNA [Suspect]
     Dosage: 200 MG, QD
     Route: 048
  3. LASIX [Concomitant]
     Dosage: UNK UKN, UNK
  4. ROPINIROLE HCL [Concomitant]
     Dosage: UNK UKN, UNK
  5. LYRICA [Concomitant]
     Dosage: UNK UKN, UNK
  6. VICODIN [Concomitant]
     Dosage: UNK UKN, UNK
  7. ONDANSETRON [Concomitant]
     Dosage: UNK UKN, UNK
  8. BACLOFEN [Concomitant]
     Dosage: UNK UKN, UNK
  9. LEXAPRO [Concomitant]
     Dosage: UNK UKN, UNK
  10. ACIPHEX [Concomitant]
     Dosage: UNK UKN, UNK
  11. LUNESTA [Concomitant]
     Dosage: UNK UKN, UNK
  12. CHOLECALCIFEROL [Concomitant]
     Dosage: UNK UKN, UNK
  13. COLACE [Concomitant]
     Dosage: UNK UKN, UNK
  14. ALPHA LIPOIC ACID [Concomitant]
     Dosage: UNK UKN, UNK

REACTIONS (2)
  - Arthralgia [Recovering/Resolving]
  - Nausea [Recovered/Resolved]
